FAERS Safety Report 16291855 (Version 1)
Quarter: 2019Q2

REPORT INFORMATION
  Report Type: Spontaneous
  Country: US (occurrence: US)
  Receive Date: 20190509
  Receipt Date: 20190509
  Transmission Date: 20190711
  Serious: Yes (Hospitalization)
  Sender: FDA-Public Use
  Company Number: US-009507513-1905USA000471

PATIENT
  Age: 58 Year
  Sex: Female

DRUGS (1)
  1. PROVENTIL [Suspect]
     Active Substance: ALBUTEROL
     Indication: ASTHMA
     Dosage: 7 PUFFS
     Route: 055

REACTIONS (2)
  - Overdose [Unknown]
  - Stress cardiomyopathy [Recovered/Resolved]
